FAERS Safety Report 4918354-6 (Version None)
Quarter: 2006Q1

REPORT INFORMATION
  Report Type: 
  Country: None (occurrence: None)
  Receive Date: 20060217
  Receipt Date: 20060217
  Transmission Date: 20060701
  Serious: Yes (Hospitalization)
  Sender: FDA-Public Use
  Company Number: None

PATIENT
  Sex: Male
  Weight: 83 kg

DRUGS (1)
  1. SUTENT [Suspect]
     Indication: METASTATIC RENAL CELL CARCINOMA
     Dosage: 37.5MG  DAILY  PO
     Route: 048
     Dates: start: 20060110, end: 20060214

REACTIONS (4)
  - ABNORMAL BEHAVIOUR [None]
  - COGNITIVE DISORDER [None]
  - HYPONATRAEMIA [None]
  - MENTAL STATUS CHANGES [None]
